FAERS Safety Report 20390600 (Version 1)
Quarter: 2022Q1

REPORT INFORMATION
  Report Type: Spontaneous
  Country: US (occurrence: None)
  Receive Date: 20220127
  Receipt Date: 20220127
  Transmission Date: 20220423
  Serious: Yes (Other)
  Sender: FDA-Public Use
  Company Number: None

PATIENT
  Age: 85 Year
  Sex: Male

DRUGS (2)
  1. COSMETICS [Suspect]
     Active Substance: COSMETICS
     Route: 061
  2. ALUMINUM ZIRCONIUM TRICHLOROHYDREX GLY [Suspect]
     Active Substance: ALUMINUM ZIRCONIUM TRICHLOROHYDREX GLY
     Route: 061

REACTIONS (1)
  - Gastric cancer [None]
